FAERS Safety Report 9507055 (Version 2)
Quarter: 2013Q3

REPORT INFORMATION
  Report Type: Spontaneous
  Country: GB (occurrence: None)
  Receive Date: 20130904
  Receipt Date: 20130905
  Transmission Date: 20140515
  Serious: Yes (Hospitalization)
  Sender: FDA-Public Use
  Company Number: AUR-APL-2013-07162

PATIENT
  Age: 74 Year
  Sex: Female

DRUGS (2)
  1. SIMVASTATIN [Suspect]
     Indication: PRODUCT USED FOR UNKNOWN INDICATION
     Route: 048
  2. CLARITHROMYCIN [Suspect]
     Indication: BLISTER INFECTED
     Route: 048

REACTIONS (6)
  - Blister infected [None]
  - Malaise [None]
  - Drug interaction [None]
  - Muscular weakness [None]
  - Diabetic foot infection [None]
  - Medication error [None]
